FAERS Safety Report 9069505 (Version 1)
Quarter: 2013Q1

REPORT INFORMATION
  Report Type: Spontaneous
  Country: US (occurrence: US)
  Receive Date: 20130131
  Receipt Date: 20130131
  Transmission Date: 20140127
  Serious: No
  Sender: FDA-Public Use
  Company Number: US-ABBOTT-12P-163-0998971-00

PATIENT
  Sex: Female
  Weight: 90.8 kg

DRUGS (6)
  1. HUMIRA [Suspect]
     Indication: PSORIATIC ARTHROPATHY
     Route: 058
     Dates: start: 20120901
  2. HUMIRA [Suspect]
     Indication: ANKYLOSING SPONDYLITIS
  3. METHOTREXATE [Concomitant]
     Indication: PSORIATIC ARTHROPATHY
  4. METHOTREXATE [Concomitant]
     Indication: ANKYLOSING SPONDYLITIS
  5. NAPROXEN [Concomitant]
     Indication: PSORIATIC ARTHROPATHY
  6. NAPROXEN [Concomitant]
     Indication: ANKYLOSING SPONDYLITIS

REACTIONS (3)
  - Wrong technique in drug usage process [Not Recovered/Not Resolved]
  - Injection site pain [Recovered/Resolved]
  - Incorrect dose administered [Not Recovered/Not Resolved]
